FAERS Safety Report 8596788-9 (Version None)
Quarter: 2012Q3

REPORT INFORMATION
  Report Type: 
  Country: None (occurrence: None)
  Receive Date: 20120815
  Receipt Date: 20120629
  Transmission Date: 20120928
  Serious: No
  Sender: FDA-Public Use
  Company Number: US-ASTRAZENECA-2012SE44755

PATIENT
  Age: 62 Year
  Sex: Female
  Weight: 68 kg

DRUGS (7)
  1. TYLENOL [Concomitant]
     Indication: HEADACHE
  2. BUSPAR [Concomitant]
  3. WELLBUTRIN SR [Concomitant]
  4. ADVIL [Concomitant]
     Indication: HEADACHE
  5. ATIVAN [Concomitant]
  6. SEROQUEL [Suspect]
     Indication: BIPOLAR II DISORDER
     Route: 048
     Dates: start: 20110101
  7. LEXAPRO [Concomitant]

REACTIONS (5)
  - COUGH [None]
  - BRONCHITIS [None]
  - MANIA [None]
  - MULTIPLE ALLERGIES [None]
  - DEPRESSION [None]
